FAERS Safety Report 20160506 (Version 2)
Quarter: 2022Q1

REPORT INFORMATION
  Report Type: Spontaneous
  Country: US (occurrence: US)
  Receive Date: 20211208
  Receipt Date: 20220131
  Transmission Date: 20220423
  Serious: Yes (Life-Threatening, Hospitalization, Other)
  Sender: FDA-Public Use
  Company Number: US-drreddys-SPO/USA/21/0144521

PATIENT
  Age: 77 Year
  Sex: Male

DRUGS (1)
  1. IBUPROFEN [Suspect]
     Active Substance: IBUPROFEN
     Indication: Product used for unknown indication

REACTIONS (4)
  - Vascular pseudoaneurysm [Recovered/Resolved]
  - Duodenal ulcer [Recovered/Resolved]
  - Haemoglobin decreased [Recovering/Resolving]
  - Melaena [Recovered/Resolved]
